FAERS Safety Report 16458886 (Version 1)
Quarter: 2019Q2

REPORT INFORMATION
  Report Type: Spontaneous
  Country: US (occurrence: US)
  Receive Date: 20190620
  Receipt Date: 20190620
  Transmission Date: 20190711
  Serious: No
  Sender: FDA-Public Use
  Company Number: US-THERAPEUTICSMD-2019TMD00938

PATIENT
  Age: 65 Year
  Sex: Female
  Weight: 90.7 kg

DRUGS (4)
  1. UNSPECIFIED ANTIBIOTIC [Suspect]
     Active Substance: UNSPECIFIED INGREDIENT
     Indication: VAGINAL INFECTION
     Dosage: UNK, 2X/DAY
     Dates: start: 201905, end: 201905
  2. UNSPECIFIED MEDICATION FOR ANXIETY AND STRESS [Concomitant]
  3. IMVEXXY [Suspect]
     Active Substance: ESTRADIOL
     Indication: VULVOVAGINAL DISCOMFORT
  4. IMVEXXY [Suspect]
     Active Substance: ESTRADIOL
     Indication: VULVOVAGINAL PAIN
     Dosage: 4 ?G, 1X/DAY AT NIGHT
     Route: 067
     Dates: start: 201905, end: 20190519

REACTIONS (10)
  - Agitation [Unknown]
  - Drug ineffective for unapproved indication [Recovered/Resolved]
  - Restlessness [Unknown]
  - Inappropriate affect [Unknown]
  - Disturbance in attention [Unknown]
  - Anxiety [Unknown]
  - Memory impairment [Not Recovered/Not Resolved]
  - Pressure of speech [Recovered/Resolved]
  - Chromaturia [Recovered/Resolved]
  - Headache [Recovered/Resolved]

NARRATIVE: CASE EVENT DATE: 201905
